FAERS Safety Report 6030799-2 (Version None)
Quarter: 2009Q1

REPORT INFORMATION
  Report Type: 
  Country: None (occurrence: None)
  Receive Date: 20090107
  Receipt Date: 20081225
  Transmission Date: 20090719
  Serious: Yes (Hospitalization)
  Sender: FDA-Public Use
  Company Number: JP-ASTRAZENECA-2008AP09903

PATIENT
  Age: 60 Year
  Sex: Male

DRUGS (6)
  1. TENORMIN [Suspect]
     Indication: ANGINA PECTORIS
     Dosage: DOSE UNKNOWN
     Route: 048
     Dates: end: 20081224
  2. CRESTOR [Suspect]
     Indication: HYPERLIPIDAEMIA
     Route: 048
     Dates: start: 20080701, end: 20081224
  3. ASPIRIN [Suspect]
     Indication: ANGINA PECTORIS
     Dosage: DOSE UNKNOWN
     Route: 048
     Dates: end: 20081224
  4. NORVASC [Suspect]
     Indication: ANGINA PECTORIS
     Dosage: DOSE UNKNOWN
     Route: 048
     Dates: end: 20081224
  5. DIOVAN [Suspect]
     Indication: HYPERTENSION
     Dosage: DOSE UNKNOWN
     Route: 048
     Dates: end: 20081224
  6. BASEN [Suspect]
     Indication: DIABETES MELLITUS
     Dosage: DOSE UNKNOWN
     Route: 048
     Dates: end: 20081224

REACTIONS (1)
  - HEPATIC FUNCTION ABNORMAL [None]
